FAERS Safety Report 16624518 (Version 3)
Quarter: 2023Q4

REPORT INFORMATION
  Report Type: Report from Study
  Country: US (occurrence: US)
  Receive Date: 20190724
  Receipt Date: 20231219
  Transmission Date: 20240110
  Serious: No
  Sender: FDA-Public Use
  Company Number: US-KYOWAKIRIN-2019BKK011475

PATIENT

DRUGS (2)
  1. BUROSUMAB [Suspect]
     Active Substance: BUROSUMAB
     Indication: Product used for unknown indication
     Dosage: UNKNOWN, EVERY 4 WEEKS
     Route: 065
  2. BUROSUMAB [Suspect]
     Active Substance: BUROSUMAB
     Dosage: UNK, 1X/4 WEEKS
     Route: 065
     Dates: start: 20220907

REACTIONS (1)
  - Migraine [Not Recovered/Not Resolved]

NARRATIVE: CASE EVENT DATE: 20190701
